FAERS Safety Report 21895905 (Version 4)
Quarter: 2023Q1

REPORT INFORMATION
  Report Type: Spontaneous
  Country: US (occurrence: None)
  Receive Date: 20230123
  Receipt Date: 20230321
  Transmission Date: 20230417
  Serious: Yes (Death, Other)
  Sender: FDA-Public Use
  Company Number: US-ROCHE-3267202

PATIENT
  Sex: Male

DRUGS (2)
  1. ACTEMRA [Suspect]
     Active Substance: TOCILIZUMAB
     Indication: COVID-19
     Route: 065
  2. VEKLURY [Suspect]
     Active Substance: REMDESIVIR
     Indication: COVID-19
     Route: 065

REACTIONS (8)
  - Organ failure [Fatal]
  - Emotional distress [Unknown]
  - Respiratory failure [Unknown]
  - Renal failure [Unknown]
  - Pain [Unknown]
  - Off label use [Unknown]
  - Anxiety [Unknown]
  - Multiple organ dysfunction syndrome [Unknown]
